FAERS Safety Report 6091419-4 (Version None)
Quarter: 2009Q1

REPORT INFORMATION
  Report Type: 
  Country: None (occurrence: None)
  Receive Date: 20090225
  Receipt Date: 20090216
  Transmission Date: 20090719
  Serious: Yes (Other)
  Sender: FDA-Public Use
  Company Number: BR-ABBOTT-09P-020-0500963-00

PATIENT
  Sex: Male
  Weight: 51 kg

DRUGS (13)
  1. NORVIR [Suspect]
     Indication: HIV INFECTION
     Route: 048
  2. ATAZANAVIR [Concomitant]
     Indication: HIV INFECTION
     Route: 048
  3. LAMIVUDINE [Concomitant]
     Indication: HIV INFECTION
     Route: 048
  4. TENOFOVIR DISOPROXIL FUMARATE [Concomitant]
     Indication: HIV INFECTION
     Route: 048
  5. ACYCLOVIR [Concomitant]
     Indication: HERPES VIRUS INFECTION
     Route: 048
  6. SULFAMETHOXAZOLE AND TRIMETHOPRIM [Concomitant]
     Indication: PROPHYLAXIS
     Dosage: 400MG/80MG; 1 OR 2 TABLETS PER DAY
     Route: 048
  7. SULFAMETHOXAZOLE AND TRIMETHOPRIM [Concomitant]
     Indication: PNEUMONIA
  8. DYPIRONE [Concomitant]
     Indication: HEADACHE
  9. ACETYLSALICYLIC ACID SRT [Concomitant]
     Indication: CARDIAC DISORDER
     Route: 048
  10. FUROSEMIDE [Concomitant]
     Indication: CARDIAC DISORDER
     Route: 048
  11. ATENOLOL [Concomitant]
     Indication: DRUG USE FOR UNKNOWN INDICATION
     Route: 048
  12. PROPATYLNITRATE [Concomitant]
     Indication: CHEST PAIN
     Dosage: WHEN HE HAS CHEST PAIN
  13. KALETRA [Concomitant]
     Indication: HIV INFECTION

REACTIONS (1)
  - CORONARY ARTERY OCCLUSION [None]
